FAERS Safety Report 18472776 (Version 2)
Quarter: 2020Q4

REPORT INFORMATION
  Report Type: Spontaneous
  Country: US (occurrence: US)
  Receive Date: 20201106
  Receipt Date: 20201215
  Transmission Date: 20210114
  Serious: No
  Sender: FDA-Public Use
  Company Number: US-PFIZER INC-2020251095

PATIENT
  Age: 15 Year
  Sex: Male
  Weight: 58.97 kg

DRUGS (2)
  1. GENOTROPIN [Suspect]
     Active Substance: SOMATROPIN
     Indication: GROWTH DISORDER
     Dosage: UNK
     Dates: start: 2018
  2. GENOTROPIN [Suspect]
     Active Substance: SOMATROPIN
     Dosage: 1.0 (UNIT UNSPECIFIED) INJECTED DAILY
     Dates: end: 20201031

REACTIONS (2)
  - Drug dose omission by device [Unknown]
  - Device issue [Unknown]

NARRATIVE: CASE EVENT DATE: 20201031
